FAERS Safety Report 6516575-2 (Version None)
Quarter: 2009Q4

REPORT INFORMATION
  Report Type: 
  Country: None (occurrence: None)
  Receive Date: 20091223
  Receipt Date: 20091217
  Transmission Date: 20100525
  Serious: Yes (Other)
  Sender: FDA-Public Use
  Company Number: US-ELI_LILLY_AND_COMPANY-US200912004393

PATIENT
  Sex: Male

DRUGS (28)
  1. HUMULIN R [Suspect]
     Indication: DIABETES MELLITUS
     Dosage: UNK, AS NEEDED
     Dates: end: 19830101
  2. HUMULIN R [Suspect]
     Dosage: 20 U, EACH EVENING
     Dates: start: 20091201, end: 20091201
  3. HUMALOG [Suspect]
     Indication: DIABETES MELLITUS
     Route: 058
     Dates: start: 19830101, end: 19870101
  4. HUMULIN N [Suspect]
     Indication: DIABETES MELLITUS
     Dosage: UNK, AS NEEDED
     Dates: end: 19830101
  5. HUMULIN N [Suspect]
     Dosage: 20 U, EACH EVENING
     Dates: start: 20091201, end: 20091201
  6. HUMULIN R [Suspect]
     Dosage: UNK, UNK
     Route: 058
     Dates: start: 20091215
  7. RENA-VITE [Concomitant]
  8. NEXIUM [Concomitant]
  9. ASPIRIN [Concomitant]
  10. FISH OIL [Concomitant]
  11. DIOVAN [Concomitant]
  12. CORTICOSTEROIDS [Concomitant]
     Indication: PAIN
  13. VITAMIN D2 [Concomitant]
  14. TOPROL-XL [Concomitant]
     Dosage: UNK, EACH MORNING
  15. TOPROL-XL [Concomitant]
     Dosage: UNK, EACH EVENING
  16. AMLODIPINE [Concomitant]
     Dosage: UNK, 2/D
  17. LYRICA [Concomitant]
  18. HECTOROL [Concomitant]
  19. RENAGEL [Concomitant]
  20. MIRALAX [Concomitant]
  21. FLONASE [Concomitant]
  22. ZYRTEC [Concomitant]
  23. WELCHOL [Concomitant]
     Dosage: 625 MG, 2/D
     Route: 048
  24. STOOL SOFTENER [Concomitant]
  25. C-PAP [Concomitant]
  26. APIDRA [Concomitant]
  27. NOVOLOG [Concomitant]
  28. NEURONTIN [Concomitant]

REACTIONS (9)
  - BLINDNESS UNILATERAL [None]
  - BLOOD GLUCOSE DECREASED [None]
  - BLOOD GLUCOSE INCREASED [None]
  - DIABETIC RETINOPATHY [None]
  - DIALYSIS [None]
  - DRUG INEFFECTIVE [None]
  - FEELING ABNORMAL [None]
  - FEELING DRUNK [None]
  - VITREOUS FLOATERS [None]
